FAERS Safety Report 9361258 (Version 1)
Quarter: 2013Q2

REPORT INFORMATION
  Report Type: Spontaneous
  Country: FR (occurrence: FR)
  Receive Date: 20130621
  Receipt Date: 20130621
  Transmission Date: 20140414
  Serious: Yes (Hospitalization)
  Sender: FDA-Public Use
  Company Number: FR-BRISTOL-MYERS SQUIBB COMPANY-19007657

PATIENT
  Age: 83 Year
  Sex: Male

DRUGS (1)
  1. COUMADINE [Suspect]
     Dates: start: 20130213, end: 20130226

REACTIONS (6)
  - Hypoprothrombinaemia [Recovered/Resolved]
  - Anaemia [Recovered/Resolved]
  - Melaena [Recovered/Resolved]
  - Gastroenteritis [Recovered/Resolved]
  - Vomiting [Recovered/Resolved]
  - Haematuria [Recovered/Resolved]
